FAERS Safety Report 10283050 (Version 2)
Quarter: 2014Q3

REPORT INFORMATION
  Report Type: Spontaneous
  Country: ES (occurrence: ES)
  Receive Date: 20140708
  Receipt Date: 20140731
  Transmission Date: 20150326
  Serious: Yes (Hospitalization)
  Sender: FDA-Public Use
  Company Number: ES-BRISTOL-MYERS SQUIBB COMPANY-21132246

PATIENT
  Age: 45 Year
  Sex: Male

DRUGS (1)
  1. BARACLUDE [Suspect]
     Active Substance: ENTECAVIR
     Indication: CHRONIC HEPATITIS B
     Dates: start: 2011, end: 2011

REACTIONS (2)
  - Macular oedema [Unknown]
  - Papillophlebitis [Unknown]

NARRATIVE: CASE EVENT DATE: 2011
